FAERS Safety Report 12341058 (Version 1)
Quarter: 2016Q2

REPORT INFORMATION
  Report Type: Spontaneous
  Country: US (occurrence: US)
  Receive Date: 20160506
  Receipt Date: 20160506
  Transmission Date: 20160815
  Serious: No
  Sender: FDA-Public Use
  Company Number: US-BAUSCH-BL-2015-017748

PATIENT
  Age: 55 Year
  Sex: Male

DRUGS (2)
  1. OFLOXACIN OTIC [Suspect]
     Active Substance: OFLOXACIN
     Indication: PREOPERATIVE CARE
     Dosage: 1 DROP PRIOR TO SURGERY
     Route: 047
     Dates: start: 20150716, end: 20150716
  2. OFLOXACIN OTIC [Suspect]
     Active Substance: OFLOXACIN
     Indication: PROPHYLAXIS

REACTIONS (2)
  - Product selection error [Unknown]
  - Wrong drug administered [Unknown]

NARRATIVE: CASE EVENT DATE: 20150716
